FAERS Safety Report 16302391 (Version 1)
Quarter: 2019Q2

REPORT INFORMATION
  Report Type: Report from Study
  Country: None (occurrence: CA)
  Receive Date: 20190513
  Receipt Date: 20190513
  Transmission Date: 20190711
  Serious: Yes (Other)
  Sender: FDA-Public Use
  Company Number: CA-ABBVIE-19K-028-2776362-00

PATIENT
  Sex: Female

DRUGS (1)
  1. HUMIRA [Suspect]
     Active Substance: ADALIMUMAB
     Indication: CROHN^S DISEASE
     Route: 058
     Dates: start: 20170610

REACTIONS (5)
  - Back pain [Not Recovered/Not Resolved]
  - Therapeutic response shortened [Unknown]
  - Haemorrhage [Not Recovered/Not Resolved]
  - Fistula discharge [Recovered/Resolved]
  - Hyperaesthesia teeth [Not Recovered/Not Resolved]

NARRATIVE: CASE EVENT DATE: 2017
